FAERS Safety Report 18802544 (Version 1)
Quarter: 2021Q1

REPORT INFORMATION
  Report Type: Spontaneous
  Country: CA (occurrence: CA)
  Receive Date: 20210129
  Receipt Date: 20210129
  Transmission Date: 20210419
  Serious: Yes (Hospitalization, Other)
  Sender: FDA-Public Use
  Company Number: CA-AUROBINDO-AUR-APL-2021-003058

PATIENT
  Age: 65 Year
  Sex: Female
  Weight: 59.8 kg

DRUGS (1)
  1. PAROXETINE TABLET [Suspect]
     Active Substance: PAROXETINE
     Indication: DEPRESSION
     Dosage: 20 MILLIGRAM, ONCE A DAY
     Route: 048

REACTIONS (2)
  - Therapeutic response changed [Recovered/Resolved]
  - Depression [Recovered/Resolved]
